FAERS Safety Report 12764910 (Version 1)
Quarter: 2016Q3

REPORT INFORMATION
  Report Type: Report from Study
  Country: IT (occurrence: IT)
  Receive Date: 20160921
  Receipt Date: 20160921
  Transmission Date: 20161109
  Serious: Yes (Hospitalization)
  Sender: FDA-Public Use
  Company Number: IT-ROCHE-1629685

PATIENT
  Age: 62 Year
  Sex: Male

DRUGS (9)
  1. ESBRIET [Suspect]
     Active Substance: PIRFENIDONE
     Indication: IDIOPATHIC PULMONARY FIBROSIS
     Dosage: 267 MG - HARD CAPSULE - ORAL USE - BLISTER PACK
     Route: 048
     Dates: start: 20150817
  2. ESBRIET [Suspect]
     Active Substance: PIRFENIDONE
     Route: 048
     Dates: start: 20150803, end: 20160623
  3. EUTIROX [Concomitant]
     Active Substance: LEVOTHYROXINE SODIUM
     Indication: HYPOTHYROIDISM
     Dosage: 100 MICROGRAM TABLETS 50 TABLETS
     Route: 048
  4. LUCEN [Concomitant]
     Active Substance: ESOMEPRAZOLE
     Indication: GASTROOESOPHAGEAL REFLUX DISEASE
     Dosage: GASTRO RESISTANT TABLETS
     Route: 048
  5. GALVUS [Concomitant]
     Active Substance: VILDAGLIPTIN
     Indication: DIABETES MELLITUS
     Dosage: 50 MG TABLET - ORAL USE BLISTER PACK
     Route: 048
  6. METFORMIN [Concomitant]
     Active Substance: METFORMIN HYDROCHLORIDE
     Indication: DIABETES MELLITUS
     Route: 048
  7. CARDIOASPIRINA [Concomitant]
     Active Substance: ASPIRIN
     Route: 048
     Dates: start: 20151117
  8. TRIATEC (ITALY) [Concomitant]
     Active Substance: RAMIPRIL
     Indication: HYPERTENSION
     Route: 048
  9. CARDIOASPIRINA [Concomitant]
     Active Substance: ASPIRIN
     Indication: THROMBOSIS PROPHYLAXIS
     Route: 048
     Dates: start: 20151010, end: 20151115

REACTIONS (7)
  - Dyspnoea exertional [Not Recovered/Not Resolved]
  - Back pain [Recovered/Resolved]
  - Haemoptysis [Recovered/Resolved]
  - Pityriasis [Recovered/Resolved]
  - Blood pressure increased [Unknown]
  - Abdominal pain [Recovered/Resolved]
  - Productive cough [Recovered/Resolved]

NARRATIVE: CASE EVENT DATE: 20150817
